FAERS Safety Report 4887499-1 (Version None)
Quarter: 2006Q1

REPORT INFORMATION
  Report Type: 
  Country: None (occurrence: None)
  Receive Date: 20060123
  Receipt Date: 20060112
  Transmission Date: 20060701
  Serious: Yes (Other)
  Sender: FDA-Public Use
  Company Number: 2006CG00105

PATIENT
  Age: 19581 Day
  Sex: Female

DRUGS (2)
  1. XYLOCAINE ADRENALINE 1% [Suspect]
     Indication: VASOCONSTRICTION
     Route: 065
     Dates: start: 20060106, end: 20060106
  2. GENERAL ANAESTHETICS [Concomitant]
     Indication: GENERAL ANAESTHESIA
     Dates: start: 20060106, end: 20060106

REACTIONS (1)
  - MUSCLE NECROSIS [None]
